FAERS Safety Report 5660295-3 (Version None)
Quarter: 2008Q1

REPORT INFORMATION
  Report Type: 
  Country: None (occurrence: None)
  Receive Date: 20080306
  Receipt Date: 20080220
  Transmission Date: 20080703
  Serious: Yes (Hospitalization)
  Sender: FDA-Public Use
  Company Number: FRPFM-E-20080016

PATIENT
  Sex: Male

DRUGS (6)
  1. NAVELBINE [Suspect]
     Indication: HODGKIN'S DISEASE
     Dosage: 10 MG/ML QD IV
     Route: 042
     Dates: start: 20070915, end: 20070919
  2. METHYL-GAG [Concomitant]
  3. ETOPOPHOS PRESERVATIVE FREE [Concomitant]
  4. UROMITEXAN [Concomitant]
  5. HOLOXAN [Concomitant]
  6. ZOPHREN [Concomitant]

REACTIONS (3)
  - PYREXIA [None]
  - RASH [None]
  - SUBCUTANEOUS NODULE [None]
